FAERS Safety Report 9185707 (Version 1)
Quarter: 2013Q1

REPORT INFORMATION
  Report Type: Spontaneous
  Country: US (occurrence: US)
  Receive Date: 20130325
  Receipt Date: 20130325
  Transmission Date: 20140127
  Serious: Yes (Other)
  Sender: FDA-Public Use
  Company Number: US-ASTRAZENECA-2012SE82555

PATIENT
  Age: 80 Year
  Sex: Female
  Weight: 73.5 kg

DRUGS (2)
  1. VIMOVO [Suspect]
     Indication: PLEURISY
     Dosage: 500 MG/20 MG BID
     Route: 048
     Dates: start: 20121023
  2. CONSTIPATION MEDICATION [Concomitant]
     Indication: CONSTIPATION

REACTIONS (7)
  - Gastrointestinal haemorrhage [Unknown]
  - Oesophageal pain [Unknown]
  - Oesophageal pain [Unknown]
  - Nausea [Recovering/Resolving]
  - Diarrhoea [Unknown]
  - Abdominal pain upper [Unknown]
  - Retching [Unknown]
